FAERS Safety Report 25978168 (Version 1)
Quarter: 2025Q4

REPORT INFORMATION
  Report Type: Spontaneous
  Country: SG (occurrence: SG)
  Receive Date: 20251030
  Receipt Date: 20251030
  Transmission Date: 20260118
  Serious: Yes (Other)
  Sender: BAUSCH AND LOMB
  Company Number: SG-BAUSCHBL-2025BNL031181

PATIENT
  Age: 7 Year
  Sex: Male

DRUGS (1)
  1. TETRACAINE HYDROCHLORIDE [Suspect]
     Active Substance: TETRACAINE HYDROCHLORIDE
     Indication: Product used for unknown indication
     Route: 061

REACTIONS (3)
  - Urticaria [Unknown]
  - Flushing [Unknown]
  - Rash erythematous [Unknown]

NARRATIVE: CASE EVENT DATE: 20251016
